FAERS Safety Report 23550491 (Version 1)
Quarter: 2024Q1

REPORT INFORMATION
  Report Type: Spontaneous
  Country: DE (occurrence: DE)
  Receive Date: 20240221
  Receipt Date: 20240221
  Transmission Date: 20240410
  Serious: Yes (Death)
  Sender: FDA-Public Use
  Company Number: None

PATIENT
  Age: 5 Year
  Sex: Male
  Weight: 18 kg

DRUGS (1)
  1. RISDIPLAM [Suspect]
     Active Substance: RISDIPLAM
     Indication: Spinal muscular atrophy
     Dosage: 4,65 MG (6,2ML)?MOST RECENT DOSE: 12/OCT/2023
     Route: 065
     Dates: start: 20220218, end: 20231012

REACTIONS (3)
  - Malaise [Unknown]
  - Cardiac arrest [Fatal]
  - Resuscitation [Fatal]

NARRATIVE: CASE EVENT DATE: 20231012
